FAERS Safety Report 15205776 (Version 2)
Quarter: 2019Q1

REPORT INFORMATION
  Report Type: Spontaneous
  Country: FI (occurrence: FI)
  Receive Date: 20180727
  Receipt Date: 20190318
  Transmission Date: 20190417
  Serious: Yes (Hospitalization)
  Sender: FDA-Public Use
  Company Number: FI-ASTRAZENECA-2018SE83765

PATIENT
  Age: 69 Year
  Sex: Female

DRUGS (5)
  1. THYROXIN [Concomitant]
     Active Substance: LEVOTHYROXINE
     Indication: HYPERTHYROIDISM
  2. PRIMASPAN [Concomitant]
     Active Substance: ASPIRIN
  3. FASLODEX [Suspect]
     Active Substance: FULVESTRANT
     Indication: BREAST CANCER
     Dosage: 2X250MG
     Route: 030
     Dates: start: 201805, end: 20180625
  4. NOVORAPID [Concomitant]
     Active Substance: INSULIN ASPART
     Indication: DIABETES MELLITUS
  5. METOPROLOL TARTRATE. [Concomitant]
     Active Substance: METOPROLOL TARTRATE
     Indication: HYPERTENSION

REACTIONS (11)
  - Injection site haemorrhage [Recovered/Resolved]
  - Erysipelas [Recovered/Resolved]
  - Pruritus [Not Recovered/Not Resolved]
  - Injection site erythema [Recovered/Resolved]
  - Skin exfoliation [Not Recovered/Not Resolved]
  - Blister [Unknown]
  - Eyelid ptosis [Not Recovered/Not Resolved]
  - Vulvovaginal candidiasis [Recovered/Resolved]
  - Injection site bruising [Recovered/Resolved]
  - Injection site pain [Recovered/Resolved]
  - Injection site nodule [Recovered/Resolved]

NARRATIVE: CASE EVENT DATE: 2017
